FAERS Safety Report 8285830-0 (Version None)
Quarter: 2012Q2

REPORT INFORMATION
  Report Type: 
  Country: None (occurrence: None)
  Receive Date: 20120413
  Receipt Date: 20120406
  Transmission Date: 20120825
  Serious: Yes (Hospitalization)
  Sender: FDA-Public Use
  Company Number: US-ELI_LILLY_AND_COMPANY-US201106004620

PATIENT
  Sex: Female

DRUGS (2)
  1. FORTEO [Suspect]
     Indication: OSTEOPOROSIS
     Dosage: 2 UG, QD
     Route: 065
     Dates: start: 20110420
  2. FORTEO [Suspect]
     Dosage: 2 UG, QD
     Route: 065

REACTIONS (3)
  - FOOT OPERATION [None]
  - INJECTION SITE HAEMATOMA [None]
  - PAIN [None]
